FAERS Safety Report 6492062-5 (Version None)
Quarter: 2009Q4

REPORT INFORMATION
  Report Type: 
  Country: None (occurrence: None)
  Receive Date: 20091125
  Receipt Date: 20090605
  Transmission Date: 20100525
  Serious: Yes (Hospitalization)
  Sender: FDA-Public Use
  Company Number: 2009BH009644

PATIENT
  Age: 36 Year
  Sex: Female

DRUGS (5)
  1. DIANEAL [Suspect]
     Indication: PERITONEAL DIALYSIS
     Dosage: 12 L ; EVERY DAY ; IP
     Route: 033
     Dates: end: 20090101
  2. TUMS [Concomitant]
  3. SENSIPAR [Concomitant]
  4. POTASSIUM CHLORIDE [Concomitant]
  5. GENTAMICIN [Concomitant]

REACTIONS (1)
  - CATHETER SITE INFECTION [None]
